FAERS Safety Report 11715359 (Version 2)
Quarter: 2015Q4

REPORT INFORMATION
  Report Type: Spontaneous
  Country: US (occurrence: US)
  Receive Date: 20151104
  Receipt Date: 20151110
  Transmission Date: 20160304
  Serious: No
  Sender: FDA-Public Use
  Company Number: US-ELI_LILLY_AND_COMPANY-US201012005067

PATIENT
  Sex: Female

DRUGS (1)
  1. FORTEO [Suspect]
     Active Substance: TERIPARATIDE
     Indication: OSTEOPOROSIS
     Dosage: 20 UG, QD
     Dates: start: 200907, end: 201108

REACTIONS (5)
  - Fall [Recovered/Resolved]
  - Fall [Recovered/Resolved]
  - Abdominal discomfort [Unknown]
  - Drug dose omission [Unknown]
  - Bone density decreased [Unknown]

NARRATIVE: CASE EVENT DATE: 2010
